FAERS Safety Report 23144123 (Version 2)
Quarter: 2024Q1

REPORT INFORMATION
  Report Type: Report from Study
  Country: US (occurrence: US)
  Receive Date: 20231103
  Receipt Date: 20240201
  Transmission Date: 20240409
  Serious: Yes (Hospitalization, Other)
  Sender: FDA-Public Use
  Company Number: US-HORIZON THERAPEUTICS-HZN-2023-008426

PATIENT

DRUGS (1)
  1. RAVICTI [Suspect]
     Active Substance: GLYCEROL PHENYLBUTYRATE
     Indication: Urea cycle disorder
     Dosage: 4.6 ML, TID
     Route: 048
     Dates: start: 20150204

REACTIONS (7)
  - Limb injury [Recovering/Resolving]
  - Spinal fracture [Unknown]
  - Lung disorder [Recovered/Resolved]
  - Ankle fracture [Recovering/Resolving]
  - Foot fracture [Unknown]
  - Tibia fracture [Unknown]
  - Fall [Unknown]

NARRATIVE: CASE EVENT DATE: 20160101
